FAERS Safety Report 9867120 (Version 4)
Quarter: 2014Q2

REPORT INFORMATION
  Report Type: Report from Study
  Country: CA (occurrence: CA)
  Receive Date: 20140204
  Receipt Date: 20140509
  Transmission Date: 20141212
  Serious: Yes (Other)
  Sender: FDA-Public Use
  Company Number: CA-ROCHE-1343730

PATIENT
  Age: 52 Year
  Sex: Female
  Weight: 72.6 kg

DRUGS (8)
  1. RITUXAN [Suspect]
     Indication: RHEUMATOID ARTHRITIS
     Dosage: FREQUENCY: DAY 1 AND DAY 15
     Route: 042
     Dates: start: 20130909
  2. ACETAMINOPHEN [Concomitant]
     Indication: PREMEDICATION
     Route: 048
     Dates: start: 20130909
  3. METHYLPREDNISOLONE [Concomitant]
     Indication: PREMEDICATION
     Route: 042
     Dates: start: 20130909
  4. METHOTREXATE [Concomitant]
  5. FOLIC ACID [Concomitant]
  6. CITALOPRAM [Concomitant]
  7. PREDNISONE [Concomitant]
  8. STATEX (CANADA) [Concomitant]

REACTIONS (6)
  - Influenza [Recovering/Resolving]
  - Rib fracture [Unknown]
  - Diplopia [Unknown]
  - Arterial occlusive disease [Unknown]
  - Osteoporosis [Not Recovered/Not Resolved]
  - Pain [Unknown]
